FAERS Safety Report 7086922-4 (Version None)
Quarter: 2010Q4

REPORT INFORMATION
  Report Type: 
  Country: None (occurrence: None)
  Receive Date: 20101106
  Receipt Date: 20101025
  Transmission Date: 20110411
  Serious: No
  Sender: FDA-Public Use
  Company Number: US-WYE-H17085810

PATIENT
  Sex: Female
  Weight: 59.02 kg

DRUGS (1)
  1. PREMARIN [Suspect]
     Indication: VULVOVAGINAL DRYNESS
     Dosage: 0.3125MG INTERMITTENTLY
     Route: 067
     Dates: start: 20090101, end: 20100801

REACTIONS (3)
  - PRODUCT QUALITY ISSUE [None]
  - VAGINAL DISCHARGE [None]
  - VAGINAL INFECTION [None]
